FAERS Safety Report 7481837-1 (Version None)
Quarter: 2011Q2

REPORT INFORMATION
  Report Type: 
  Country: None (occurrence: None)
  Receive Date: 20110506
  Receipt Date: 20110421
  Transmission Date: 20111010
  Serious: Yes (Hospitalization, Other)
  Sender: FDA-Public Use
  Company Number: FK201100791

PATIENT
  Sex: Female

DRUGS (1)
  1. PROPOFOL [Suspect]
     Indication: PRODUCT USED FOR UNKNOWN INDICATION

REACTIONS (7)
  - PARALYSIS [None]
  - CHEST PAIN [None]
  - IMMOBILE [None]
  - PAIN [None]
  - THROMBOSIS [None]
  - INCORRECT ROUTE OF DRUG ADMINISTRATION [None]
  - DYSPNOEA [None]
